FAERS Safety Report 8448949-7 (Version None)
Quarter: 2012Q2

REPORT INFORMATION
  Report Type: 
  Country: None (occurrence: None)
  Receive Date: 20120619
  Receipt Date: 20120614
  Transmission Date: 20120825
  Serious: Yes (Other)
  Sender: FDA-Public Use
  Company Number: TW-GLAXOSMITHKLINE-B0808992A

PATIENT
  Age: 73 Year
  Sex: Female

DRUGS (2)
  1. AVANDAMET [Suspect]
     Indication: PRODUCT USED FOR UNKNOWN INDICATION
     Route: 065
     Dates: start: 20080707, end: 20080803
  2. AMARYL [Concomitant]
     Dosage: 2MG TWICE PER DAY

REACTIONS (1)
  - HYPOGLYCAEMIA [None]
